FAERS Safety Report 16526437 (Version 1)
Quarter: 2019Q3

REPORT INFORMATION
  Report Type: Spontaneous
  Country: US (occurrence: US)
  Receive Date: 20190523
  Receipt Date: 20190523
  Transmission Date: 20191004
  Serious: No
  Sender: FDA-Public Use
  Company Number: None

PATIENT
  Age: 54 Year
  Sex: Female

DRUGS (1)
  1. HUMIRA [Suspect]
     Active Substance: ADALIMUMAB
     Indication: PSORIASIS
     Dosage: START DOSING START DOSE SUBCUANEOUS
     Route: 058
     Dates: start: 201904

REACTIONS (2)
  - Injection site bruising [None]
  - Wrong technique in product usage process [None]

NARRATIVE: CASE EVENT DATE: 201904
